FAERS Safety Report 24797858 (Version 1)
Quarter: 2025Q1

REPORT INFORMATION
  Report Type: Report from Study
  Country: IN (occurrence: IN)
  Receive Date: 20250102
  Receipt Date: 20250102
  Transmission Date: 20250408
  Serious: Yes (Death)
  Sender: ROCHE
  Company Number: IN-ROCHE-3436924

PATIENT
  Age: 63 Year
  Sex: Male

DRUGS (1)
  1. TECENTRIQ [Suspect]
     Active Substance: ATEZOLIZUMAB
     Indication: Lung neoplasm malignant
     Dosage: MOST RECENT DOSE WAS ADMINISTERED ON 26/SEP/2023, (24TH CYCLE)
     Route: 041
     Dates: start: 20220427

REACTIONS (3)
  - Off label use [Unknown]
  - Asthenia [Unknown]
  - Lung neoplasm malignant [Fatal]
